FAERS Safety Report 10050137 (Version 1)
Quarter: 2014Q1

REPORT INFORMATION
  Report Type: Spontaneous
  Country: US (occurrence: None)
  Receive Date: 20140331
  Receipt Date: 20140331
  Transmission Date: 20141002
  Serious: Yes (Hospitalization)
  Sender: FDA-Public Use
  Company Number: None

PATIENT
  Age: 65 Year
  Sex: Female
  Weight: 68.8 kg

DRUGS (3)
  1. CISPLATIN [Suspect]
  2. DOXORUBICIN HYDROCHLORIDE [Suspect]
  3. PACLITAXEL (TAXOL) [Suspect]

REACTIONS (31)
  - Syncope [None]
  - Excoriation [None]
  - Aphagia [None]
  - Nausea [None]
  - Dyspepsia [None]
  - Blood pressure diastolic decreased [None]
  - Electrocardiogram T wave amplitude decreased [None]
  - Electrocardiogram ST segment depression [None]
  - Blood sodium decreased [None]
  - Blood chloride decreased [None]
  - Dehydration [None]
  - Troponin increased [None]
  - Haemoglobin decreased [None]
  - Blood potassium decreased [None]
  - Oedema mouth [None]
  - Aphthous stomatitis [None]
  - Dysphagia [None]
  - Oropharyngeal pain [None]
  - No therapeutic response [None]
  - Neutrophil count decreased [None]
  - Pain [None]
  - Body temperature increased [None]
  - Lip ulceration [None]
  - Candida infection [None]
  - Asthenia [None]
  - Dizziness [None]
  - Speech disorder [None]
  - Oral pain [None]
  - Blood magnesium abnormal [None]
  - Blood phosphorus abnormal [None]
  - Decreased appetite [None]
